FAERS Safety Report 8113203-X (Version None)
Quarter: 2012Q1

REPORT INFORMATION
  Report Type: 
  Country: None (occurrence: None)
  Receive Date: 20120203
  Receipt Date: 20120123
  Transmission Date: 20120608
  Serious: Yes (Hospitalization)
  Sender: FDA-Public Use
  Company Number: PHHY2012JP006712

PATIENT
  Age: 74 Year
  Sex: Male

DRUGS (1)
  1. VALSARTAN [Suspect]

REACTIONS (2)
  - RENAL DISORDER [None]
  - LACTIC ACIDOSIS [None]
